FAERS Safety Report 6308105-5 (Version None)
Quarter: 2009Q3

REPORT INFORMATION
  Report Type: 
  Country: None (occurrence: None)
  Receive Date: 20090813
  Receipt Date: 20090812
  Transmission Date: 20100115
  Serious: Yes (Hospitalization)
  Sender: FDA-Public Use
  Company Number: FR-AVENTIS-200912034FR

PATIENT
  Age: 9 Year
  Sex: Male
  Weight: 25 kg

DRUGS (5)
  1. COLIMYCINE                         /00013202/ [Suspect]
     Indication: OSTEOMYELITIS
     Route: 042
     Dates: start: 20081218, end: 20090224
  2. COLIMYCINE                         /00013202/ [Suspect]
     Route: 042
     Dates: start: 20090225, end: 20090228
  3. RIFADIN [Suspect]
     Indication: OSTEOMYELITIS
     Dosage: DOSE QUANTITY: 24; DAILY DOSE UNIT: MILLI-EQUIVALENT PER KILOGRAM BODY WEIGHT
     Route: 042
     Dates: start: 20081130, end: 20090210
  4. ANTIBACTERIALS FOR SYSTEMIC USE [Suspect]
     Indication: OSTEOMYELITIS
     Route: 042
     Dates: start: 20081203, end: 20090130
  5. ANTIBACTERIALS FOR SYSTEMIC USE [Suspect]
     Route: 042
     Dates: start: 20090210, end: 20090225

REACTIONS (6)
  - ABDOMINAL PAIN [None]
  - BLOOD AMYLASE INCREASED [None]
  - CONSTIPATION [None]
  - FLATULENCE [None]
  - LIPASE INCREASED [None]
  - PANCREATITIS ACUTE [None]
